FAERS Safety Report 24969466 (Version 2)
Quarter: 2025Q3

REPORT INFORMATION
  Report Type: Spontaneous
  Country: ZA (occurrence: ZA)
  Receive Date: 20250214
  Receipt Date: 20250804
  Transmission Date: 20251021
  Serious: Yes (Other)
  Sender: GLAXOSMITHKLINE
  Company Number: ZA-GSK-ZA2025GSK017504

PATIENT
  Age: 30 Year
  Sex: Male

DRUGS (2)
  1. LAMOTRIGINE [Suspect]
     Active Substance: LAMOTRIGINE
     Indication: Depression
  2. ATROPINE [Concomitant]
     Active Substance: ATROPINE
     Indication: Asthma

REACTIONS (1)
  - Restrictive cardiomyopathy [Recovered/Resolved]
